FAERS Safety Report 25729358 (Version 1)
Quarter: 2025Q3

REPORT INFORMATION
  Report Type: Spontaneous
  Country: EU (occurrence: EU)
  Receive Date: 20250827
  Receipt Date: 20250827
  Transmission Date: 20251020
  Serious: Yes (Hospitalization)
  Sender: ALEXION PHARMACEUTICALS
  Company Number: None

PATIENT
  Age: 66 Year
  Sex: Female
  Weight: 83 kg

DRUGS (14)
  1. ULTOMIRIS [Suspect]
     Active Substance: RAVULIZUMAB-CWVZ
     Indication: Neuromyelitis optica spectrum disorder
     Dosage: 3300 MILLIGRAM, QW
     Dates: start: 20240926, end: 20250728
  2. DULOXETINE [Suspect]
     Active Substance: DULOXETINE
     Indication: Neuralgia
  3. LYRICA [Suspect]
     Active Substance: PREGABALIN
     Indication: Neuralgia
  4. BACLOFEN [Suspect]
     Active Substance: BACLOFEN
     Indication: Paraparesis
  5. RIVOTRIL [Suspect]
     Active Substance: CLONAZEPAM
     Indication: Paraparesis
  6. ALFUZOSIN HYDROCHLORIDE [Suspect]
     Active Substance: ALFUZOSIN HYDROCHLORIDE
     Indication: Bladder sphincter atony
  7. ATORVASTATIN [Suspect]
     Active Substance: ATORVASTATIN
     Indication: Cardiovascular event prophylaxis
  8. LEVOTHYROXINE [Suspect]
     Active Substance: LEVOTHYROXINE
     Indication: Hypothyroidism
  9. CYANOCOBALAMIN [Suspect]
     Active Substance: CYANOCOBALAMIN
     Indication: Vitamin supplementation
  10. PENICILLIN V [Suspect]
     Active Substance: PENICILLIN V
     Indication: Prophylaxis
  11. CHOLECALCIFEROL [Suspect]
     Active Substance: CHOLECALCIFEROL
  12. ACETAMINOPHEN [Suspect]
     Active Substance: ACETAMINOPHEN
  13. POLYETHYLENE GLYCOL 4000 [Suspect]
     Active Substance: POLYETHYLENE GLYCOL 4000
     Indication: Constipation
  14. PLAVIX [Suspect]
     Active Substance: CLOPIDOGREL BISULFATE
     Indication: Cardiovascular event prophylaxis

REACTIONS (1)
  - Ischaemic stroke [Recovering/Resolving]

NARRATIVE: CASE EVENT DATE: 20250806
